FAERS Safety Report 4376036-6 (Version None)
Quarter: 2004Q2

REPORT INFORMATION
  Report Type: 
  Country: None (occurrence: None)
  Receive Date: 20040609
  Receipt Date: 20040609
  Transmission Date: 20050107
  Serious: Yes (Life-Threatening)
  Sender: FDA-Public Use
  Company Number: None

PATIENT
  Age: 51 Year
  Sex: Female

DRUGS (15)
  1. MILRINONE [Suspect]
     Indication: CARDIAC DISORDER
     Dosage: 400MG/200ML AT 0375 MCG/KG/MIN
  2. APAP TAB [Concomitant]
  3. COSYNTROPIN [Concomitant]
  4. DESMOPRESSIN [Concomitant]
  5. EPOGEN [Concomitant]
  6. FENTANYL [Concomitant]
  7. LANSOPRAZOLE [Concomitant]
  8. LEVOFLOXACIN [Concomitant]
  9. LORAZEPAM [Concomitant]
  10. METHYLPREDNISOLONE [Concomitant]
  11. METRONIDAZOLE [Concomitant]
  12. MIDAZOLAM HCL [Concomitant]
  13. REMANTINE [Concomitant]
  14. TEMAZEPAM [Concomitant]
  15. VANCOMYCIN [Concomitant]

REACTIONS (3)
  - CARDIAC FAILURE [None]
  - HYPOTENSION [None]
  - RESPIRATORY RATE INCREASED [None]
